FAERS Safety Report 6085566-0 (Version None)
Quarter: 2009Q1

REPORT INFORMATION
  Report Type: 
  Country: None (occurrence: None)
  Receive Date: 20090217
  Receipt Date: 20090217
  Transmission Date: 20090719
  Serious: Yes (Death)
  Sender: FDA-Public Use
  Company Number: None

PATIENT
  Sex: Male

DRUGS (2)
  1. BACTRIM DS [Suspect]
     Indication: CELLULITIS
     Dosage: 2TABS Q12H PO
     Route: 048
     Dates: start: 20090102, end: 20090120
  2. BACTRIM DS [Suspect]
     Indication: GOUT
     Dosage: 2TABS Q12H PO
     Route: 048
     Dates: start: 20090102, end: 20090120

REACTIONS (9)
  - ACUTE RESPIRATORY DISTRESS SYNDROME [None]
  - DEHYDRATION [None]
  - HEPATITIS [None]
  - HYPERKALAEMIA [None]
  - HYPERURICAEMIA [None]
  - HYPOXIA [None]
  - PANCYTOPENIA [None]
  - RENAL FAILURE ACUTE [None]
  - THROMBOCYTOPENIA [None]
